FAERS Safety Report 12571886 (Version 1)
Quarter: 2016Q3

REPORT INFORMATION
  Report Type: Spontaneous
  Country: US (occurrence: US)
  Receive Date: 20160719
  Receipt Date: 20160719
  Transmission Date: 20161109
  Serious: No
  Sender: FDA-Public Use
  Company Number: US-BAUSCH-BL-2016-004099

PATIENT
  Age: 43 Year
  Weight: 74.91 kg

DRUGS (7)
  1. XIFAXAN [Suspect]
     Active Substance: RIFAXIMIN
     Indication: AMMONIA ABNORMAL
     Route: 048
     Dates: start: 201601
  2. XIFAXAN [Suspect]
     Active Substance: RIFAXIMIN
     Indication: HEPATITIS C
  3. ASPIRIN. [Concomitant]
     Active Substance: ASPIRIN
     Indication: BLOOD VISCOSITY ABNORMAL
     Route: 048
  4. LASIX [Concomitant]
     Active Substance: FUROSEMIDE
     Indication: FLUID RETENTION
     Route: 048
  5. REGLAN [Concomitant]
     Active Substance: METOCLOPRAMIDE HYDROCHLORIDE
     Indication: ABDOMINAL DISCOMFORT
     Route: 048
  6. WARFARIN [Concomitant]
     Active Substance: WARFARIN
     Indication: BLOOD VISCOSITY ABNORMAL
     Route: 048
  7. PROTONIX [Concomitant]
     Active Substance: PANTOPRAZOLE SODIUM
     Indication: ABDOMINAL DISCOMFORT
     Route: 048

REACTIONS (4)
  - Diarrhoea [Recovering/Resolving]
  - Drug dose omission [Unknown]
  - Muscle spasms [Recovering/Resolving]
  - Ammonia increased [Recovering/Resolving]

NARRATIVE: CASE EVENT DATE: 20160212
